FAERS Safety Report 9437149 (Version 2)
Quarter: 2013Q3

REPORT INFORMATION
  Report Type: Spontaneous
  Country: US (occurrence: US)
  Receive Date: 20130802
  Receipt Date: 20130806
  Transmission Date: 20140515
  Serious: No
  Sender: FDA-Public Use
  Company Number: US-BAYER-2013-091117

PATIENT
  Age: 16 Year
  Sex: Female

DRUGS (1)
  1. CLIMARA [Suspect]
     Indication: TURNER^S SYNDROME
     Dosage: UNK
     Route: 062
     Dates: start: 201306

REACTIONS (3)
  - Off label use [None]
  - Product adhesion issue [Not Recovered/Not Resolved]
  - Wrong technique in drug usage process [None]
